FAERS Safety Report 10061791 (Version 2)
Quarter: 2014Q2

REPORT INFORMATION
  Report Type: Spontaneous
  Country: US (occurrence: US)
  Receive Date: 20140407
  Receipt Date: 20140416
  Transmission Date: 20141212
  Serious: No
  Sender: FDA-Public Use
  Company Number: US-BIOGENIDEC-2014BI031197

PATIENT
  Age: 57 Year
  Sex: Female

DRUGS (6)
  1. AVONEX [Suspect]
     Indication: MULTIPLE SCLEROSIS
     Route: 030
  2. AVONEX [Suspect]
     Indication: MULTIPLE SCLEROSIS
     Route: 030
     Dates: start: 20140207
  3. FLUOXETINE [Concomitant]
     Indication: EMOTIONAL DISORDER
     Route: 048
  4. NORCO [Concomitant]
     Indication: INTERVERTEBRAL DISC DEGENERATION
     Route: 048
  5. VALIUM [Concomitant]
     Indication: ANXIETY
     Route: 048
  6. VITAMIN D [Concomitant]
     Indication: VITAMIN D DEFICIENCY
     Route: 048

REACTIONS (6)
  - Conversion disorder [Recovered/Resolved with Sequelae]
  - Weight decreased [Unknown]
  - Panic attack [Unknown]
  - Stress [Unknown]
  - Pain [Unknown]
  - Decreased appetite [Unknown]
